FAERS Safety Report 24963792 (Version 1)
Quarter: 2025Q1

REPORT INFORMATION
  Report Type: Spontaneous
  Country: US (occurrence: US)
  Receive Date: 20250213
  Receipt Date: 20250213
  Transmission Date: 20250408
  Serious: No
  Sender: TAKEDA
  Company Number: US-TAKEDA-2025TUS014599

PATIENT

DRUGS (2)
  1. VYVANSE [Suspect]
     Active Substance: LISDEXAMFETAMINE DIMESYLATE
     Indication: Product used for unknown indication
  2. VYVANSE [Suspect]
     Active Substance: LISDEXAMFETAMINE DIMESYLATE

REACTIONS (11)
  - Drug ineffective [Unknown]
  - Clumsiness [Unknown]
  - Disturbance in attention [Unknown]
  - Eating disorder [Unknown]
  - Product storage error [Unknown]
  - Product quality issue [Unknown]
  - Caffeine dependence [Unknown]
  - Hyperphagia [Unknown]
  - Product storage error [Unknown]
  - Irritability [Unknown]
  - Fatigue [Unknown]
